FAERS Safety Report 10259881 (Version 2)
Quarter: 2015Q4

REPORT INFORMATION
  Report Type: Spontaneous
  Country: FR (occurrence: FR)
  Receive Date: 20140625
  Receipt Date: 20151008
  Transmission Date: 20160304
  Serious: Yes (Hospitalization, Other)
  Sender: FDA-Public Use
  Company Number: FR-GLAXOSMITHKLINE-B1004459A

PATIENT
  Age: 55 Year
  Sex: Male

DRUGS (7)
  1. ATENOLOL. [Concomitant]
     Active Substance: ATENOLOL
     Route: 065
  2. CELOCURINE [Suspect]
     Active Substance: SUCCINYLCHOLINE CHLORIDE
     Indication: ANAESTHESIA
     Route: 065
     Dates: start: 20130206, end: 20130206
  3. AUGMENTIN [Suspect]
     Active Substance: AMOXICILLIN\CLAVULANATE POTASSIUM
     Indication: ANAESTHETIC PREMEDICATION
     Route: 065
     Dates: start: 20130203, end: 20130206
  4. ATARAX [Suspect]
     Active Substance: HYDROXYZINE\HYDROXYZINE HYDROCHLORIDE
     Indication: ANAESTHETIC PREMEDICATION
     Dosage: UNK, SINGLE
     Route: 048
     Dates: start: 20130206, end: 20130206
  5. SUFENTANIL [Suspect]
     Active Substance: SUFENTANIL
     Indication: ANAESTHESIA
     Route: 065
     Dates: start: 20130206, end: 20130206
  6. RANIPLEX [Suspect]
     Active Substance: RANITIDINE HYDROCHLORIDE
     Indication: ANAESTHETIC PREMEDICATION
     Route: 048
     Dates: start: 20130206, end: 20130206
  7. PROPOFOL. [Suspect]
     Active Substance: PROPOFOL
     Indication: ANAESTHESIA
     Route: 065
     Dates: start: 20130206, end: 20130206

REACTIONS (7)
  - Electrocardiogram ST segment elevation [Recovered/Resolved]
  - Blood pressure decreased [Recovered/Resolved]
  - Ventricular fibrillation [Recovered/Resolved]
  - Bronchospasm [Recovered/Resolved]
  - Anaphylactic shock [Recovered/Resolved]
  - Cardiac arrest [Recovered/Resolved]
  - Bradycardia [Recovered/Resolved]

NARRATIVE: CASE EVENT DATE: 20130206
